FAERS Safety Report 19282447 (Version 2)
Quarter: 2021Q2

REPORT INFORMATION
  Report Type: Report from Study
  Country: DO (occurrence: DO)
  Receive Date: 20210520
  Receipt Date: 20210528
  Transmission Date: 20210717
  Serious: Yes (Death, Hospitalization)
  Sender: FDA-Public Use
  Company Number: NVSC2021DO058731

PATIENT
  Age: 41 Year
  Sex: Female

DRUGS (2)
  1. REVOLADE [Suspect]
     Active Substance: ELTROMBOPAG OLAMINE
     Indication: APLASTIC ANAEMIA
     Dosage: 150 MG, Q24H
     Route: 048
     Dates: start: 20201222
  2. REVOLADE [Suspect]
     Active Substance: ELTROMBOPAG OLAMINE
     Dosage: 150 MG, QD (PRESENTATION 25 MG)
     Route: 048
     Dates: start: 20210122

REACTIONS (13)
  - Brain hypoxia [Fatal]
  - Respiratory disorder [Not Recovered/Not Resolved]
  - Blood pressure increased [Unknown]
  - Haemorrhage [Fatal]
  - Oedema [Fatal]
  - Depression [Not Recovered/Not Resolved]
  - Haematoma [Not Recovered/Not Resolved]
  - Heart rate increased [Unknown]
  - Vomiting [Fatal]
  - Platelet count decreased [Unknown]
  - Condition aggravated [Fatal]
  - Haematemesis [Not Recovered/Not Resolved]
  - Communication disorder [Not Recovered/Not Resolved]

NARRATIVE: CASE EVENT DATE: 20210308
